FAERS Safety Report 5686139-1 (Version None)
Quarter: 2008Q1

REPORT INFORMATION
  Report Type: 
  Country: None (occurrence: None)
  Receive Date: 20080328
  Receipt Date: 20070713
  Transmission Date: 20080703
  Serious: No
  Sender: FDA-Public Use
  Company Number: US-BAYER-US-2007-026160

PATIENT
  Age: 45 Year
  Sex: Female
  Weight: 78 kg

DRUGS (3)
  1. MIRENA [Suspect]
     Indication: MENSTRUATION IRREGULAR
     Route: 015
     Dates: start: 20051201
  2. ASMANEX TWISTHALER [Concomitant]
  3. XOLAIR [Concomitant]

REACTIONS (2)
  - COMPLICATION OF DEVICE INSERTION [None]
  - GENITAL HAEMORRHAGE [None]
